FAERS Safety Report 6412184-4 (Version None)
Quarter: 2009Q4

REPORT INFORMATION
  Report Type: 
  Country: None (occurrence: None)
  Receive Date: 20091023
  Receipt Date: 20091021
  Transmission Date: 20100525
  Serious: Yes (Hospitalization)
  Sender: FDA-Public Use
  Company Number: A0812670A

PATIENT
  Age: 65 Year
  Sex: Female

DRUGS (13)
  1. AVANDIA [Suspect]
     Indication: DRUG USE FOR UNKNOWN INDICATION
     Dosage: 8MG PER DAY
     Route: 048
  2. CHAMPIX [Suspect]
     Indication: DRUG USE FOR UNKNOWN INDICATION
     Dosage: 1MG TWICE PER DAY
     Route: 048
  3. CIPRO [Suspect]
     Indication: DRUG USE FOR UNKNOWN INDICATION
     Dosage: 500MG TWICE PER DAY
     Route: 065
  4. ALTACE [Concomitant]
     Route: 065
  5. BEZAFIBRATE [Concomitant]
     Route: 065
  6. CALCIUM CHANNEL BLOCKER [Concomitant]
     Route: 065
  7. COZAAR [Concomitant]
     Route: 065
  8. HYDROCHLOROTHIAZIDE [Concomitant]
     Route: 065
  9. LIPITOR [Concomitant]
     Route: 065
  10. METFORMIN HCL [Concomitant]
     Route: 065
  11. NORVASC [Concomitant]
     Route: 065
  12. PLAVIX [Concomitant]
     Route: 065
  13. SIMVASTATIN [Concomitant]
     Route: 065

REACTIONS (2)
  - ACUTE MYOCARDIAL INFARCTION [None]
  - CHEST PAIN [None]
